FAERS Safety Report 6491283-5 (Version None)
Quarter: 2009Q4

REPORT INFORMATION
  Report Type: 
  Country: None (occurrence: None)
  Receive Date: 20091211
  Receipt Date: 20091204
  Transmission Date: 20100525
  Serious: Yes (Hospitalization)
  Sender: FDA-Public Use
  Company Number: PHHO2009US12797

PATIENT
  Age: 71 Year
  Sex: Male
  Weight: 98 kg

DRUGS (9)
  1. AFINITOR [Suspect]
     Indication: MULTIPLE MYELOMA
     Dosage: 5 MG, QD
     Route: 048
     Dates: start: 20090903, end: 20091118
  2. REVLIMID [Concomitant]
     Indication: MULTIPLE MYELOMA
     Dosage: UNK
     Dates: start: 20090903, end: 20091118
  3. ALLOPURINOL [Concomitant]
  4. HYDROCORTISONE [Concomitant]
  5. ASPIRIN [Concomitant]
  6. ZETIA [Concomitant]
  7. VICODIN [Concomitant]
  8. ZANTAC [Concomitant]
  9. FLOMAX [Concomitant]

REACTIONS (11)
  - ASTHENIA [None]
  - CHEST PAIN [None]
  - COUGH [None]
  - DIARRHOEA [None]
  - DYSPNOEA [None]
  - PLATELET COUNT DECREASED [None]
  - PNEUMONITIS [None]
  - RESPIRATORY DISTRESS [None]
  - RESPIRATORY RATE INCREASED [None]
  - UPPER RESPIRATORY TRACT INFECTION [None]
  - VOMITING [None]
